FAERS Safety Report 21650188 (Version 2)
Quarter: 2023Q1

REPORT INFORMATION
  Report Type: Report from Study
  Country: US (occurrence: US)
  Receive Date: 20221128
  Receipt Date: 20230328
  Transmission Date: 20230418
  Serious: No
  Sender: FDA-Public Use
  Company Number: US-ABBVIE-22K-163-4413936-00

PATIENT
  Sex: Male
  Weight: 88.45 kg

DRUGS (15)
  1. IMBRUVICA [Suspect]
     Active Substance: IBRUTINIB
     Indication: Chronic lymphocytic leukaemia
     Route: 048
     Dates: start: 20181116, end: 20220629
  2. IMBRUVICA [Suspect]
     Active Substance: IBRUTINIB
     Indication: Chronic lymphocytic leukaemia
     Route: 048
     Dates: start: 20220702
  3. IMBRUVICA [Suspect]
     Active Substance: IBRUTINIB
     Indication: Chronic lymphocytic leukaemia
     Dosage: 420 MILLIGRAM
     Route: 048
     Dates: start: 20181116, end: 20220629
  4. IMBRUVICA [Suspect]
     Active Substance: IBRUTINIB
     Indication: Chronic lymphocytic leukaemia
     Route: 048
     Dates: start: 201811
  5. IMBRUVICA [Suspect]
     Active Substance: IBRUTINIB
     Indication: Chronic lymphocytic leukaemia
     Route: 048
     Dates: start: 20181117
  6. Moderna [Concomitant]
     Indication: COVID-19 immunisation
     Dosage: 2ND DOSE ?ONE IN ONCE
     Route: 030
     Dates: start: 202102, end: 202102
  7. Moderna [Concomitant]
     Indication: COVID-19 immunisation
     Dosage: 1ST DOSE ?ONE IN ONCE
     Route: 030
     Dates: start: 202101, end: 202101
  8. Moderna [Concomitant]
     Indication: COVID-19 immunisation
     Dosage: 3RD DOSE ?ONE IN ONCE
     Route: 030
     Dates: start: 202109, end: 202109
  9. AMLODIPINE [Concomitant]
     Active Substance: AMLODIPINE BESYLATE
     Indication: Product used for unknown indication
  10. AMLODIPINE [Concomitant]
     Active Substance: AMLODIPINE BESYLATE
     Indication: Product used for unknown indication
     Route: 065
  11. LOSARTAN [Concomitant]
     Active Substance: LOSARTAN
     Indication: Product used for unknown indication
     Route: 065
  12. IMATINIB [Concomitant]
     Active Substance: IMATINIB
     Indication: Product used for unknown indication
     Route: 065
  13. FENOFIBRATE [Concomitant]
     Active Substance: FENOFIBRATE
     Indication: Product used for unknown indication
     Route: 065
  14. PAXLOVID [Concomitant]
     Active Substance: NIRMATRELVIR\RITONAVIR
     Indication: Product used for unknown indication
  15. FENOFIBRATE [Concomitant]
     Active Substance: FENOFIBRATE
     Indication: Product used for unknown indication

REACTIONS (24)
  - COVID-19 [Recovering/Resolving]
  - Skin fissures [Recovering/Resolving]
  - Blood creatinine increased [Unknown]
  - Blood sodium increased [Recovering/Resolving]
  - Epiglottis dysfunction [Recovering/Resolving]
  - Fatigue [Recovering/Resolving]
  - Platelet count abnormal [Unknown]
  - Skin disorder [Recovered/Resolved]
  - Aphasia [Recovering/Resolving]
  - Diffuse idiopathic skeletal hyperostosis [Recovering/Resolving]
  - Chills [Recovering/Resolving]
  - Onychoclasis [Not Recovered/Not Resolved]
  - Pruritus [Recovered/Resolved]
  - Gastrooesophageal reflux disease [Recovering/Resolving]
  - Abdominal discomfort [Recovering/Resolving]
  - Pain [Recovered/Resolved]
  - Dysphagia [Recovering/Resolving]
  - Ageusia [Recovering/Resolving]
  - Headache [Recovering/Resolving]
  - Rhinorrhoea [Recovering/Resolving]
  - Diarrhoea [Recovered/Resolved]
  - Pyrexia [Recovered/Resolved]
  - Blood chloride increased [Recovering/Resolving]
  - Drug clearance decreased [Unknown]

NARRATIVE: CASE EVENT DATE: 20200101
